FAERS Safety Report 14012076 (Version 1)
Quarter: 2017Q3

REPORT INFORMATION
  Report Type: Report from Study
  Country: HU (occurrence: HU)
  Receive Date: 20170926
  Receipt Date: 20170926
  Transmission Date: 20171128
  Serious: Yes (Other)
  Sender: FDA-Public Use
  Company Number: PHHY2016HU036020

PATIENT
  Age: 10 Year
  Sex: Male

DRUGS (3)
  1. GLIVEC [Suspect]
     Active Substance: IMATINIB MESYLATE
     Indication: ACUTE LYMPHOCYTIC LEUKAEMIA
     Dosage: 300 MG, QD
     Route: 048
     Dates: start: 20141031
  2. GLIVEC [Suspect]
     Active Substance: IMATINIB MESYLATE
     Indication: PHILADELPHIA CHROMOSOME POSITIVE
     Dosage: 300 MG, QD
     Route: 048
     Dates: start: 20141105, end: 20150209
  3. GLIVEC [Suspect]
     Active Substance: IMATINIB MESYLATE
     Dosage: UNK
     Route: 048
     Dates: start: 20150218

REACTIONS (6)
  - White blood cell count decreased [Unknown]
  - Pharyngitis [Unknown]
  - Pneumonia [Unknown]
  - Iridocyclitis [Unknown]
  - Bronchitis [Unknown]
  - Haematuria [Unknown]

NARRATIVE: CASE EVENT DATE: 20150210
